FAERS Safety Report 24588844 (Version 2)
Quarter: 2024Q4

REPORT INFORMATION
  Report Type: Report from Study
  Country: JP (occurrence: JP)
  Receive Date: 20241107
  Receipt Date: 20241127
  Transmission Date: 20250115
  Serious: Yes (Other)
  Sender: TAKEDA
  Company Number: JP-JNJFOC-20241110948

PATIENT
  Age: 71 Year
  Sex: Male
  Weight: 67.4 kg

DRUGS (20)
  1. BORTEZOMIB [Suspect]
     Active Substance: BORTEZOMIB
     Indication: Plasma cell myeloma
     Dosage: UNK
  2. DARATUMUMAB [Suspect]
     Active Substance: DARATUMUMAB
     Indication: Plasma cell myeloma
     Dosage: 1800 MILLIGRAM, QD
     Dates: start: 20230907, end: 20230907
  3. DARATUMUMAB [Suspect]
     Active Substance: DARATUMUMAB
     Dosage: 1800 MILLIGRAM, QD
     Dates: start: 20230915, end: 20230915
  4. DARATUMUMAB [Suspect]
     Active Substance: DARATUMUMAB
     Dosage: 1800 MILLIGRAM, QD
     Dates: start: 20230922, end: 20230922
  5. DARATUMUMAB [Suspect]
     Active Substance: DARATUMUMAB
     Dosage: 1800 MILLIGRAM, QD
     Dates: start: 20230929, end: 20230929
  6. DARATUMUMAB [Suspect]
     Active Substance: DARATUMUMAB
     Dosage: 1800 MILLIGRAM, QD
     Dates: start: 20231006, end: 20231006
  7. DARATUMUMAB [Suspect]
     Active Substance: DARATUMUMAB
     Dosage: 1800 MILLIGRAM, QD
     Dates: start: 20231025, end: 20231025
  8. DARATUMUMAB [Suspect]
     Active Substance: DARATUMUMAB
     Dosage: 1800 MILLIGRAM, QD
     Dates: start: 20231101, end: 20231101
  9. DARATUMUMAB [Suspect]
     Active Substance: DARATUMUMAB
     Dosage: 1800 MILLIGRAM, QD
     Dates: start: 20231108, end: 20231108
  10. DARATUMUMAB [Suspect]
     Active Substance: DARATUMUMAB
     Dosage: 1800 MILLIGRAM, QD
     Dates: start: 20231115, end: 20231115
  11. DARATUMUMAB [Suspect]
     Active Substance: DARATUMUMAB
     Dosage: 1800 MILLIGRAM, QD
     Dates: start: 20231206, end: 20231206
  12. DARATUMUMAB [Suspect]
     Active Substance: DARATUMUMAB
     Dosage: 1800 MILLIGRAM, QD
     Dates: start: 20231227, end: 20231227
  13. DARATUMUMAB [Suspect]
     Active Substance: DARATUMUMAB
     Dosage: 1800 MILLIGRAM, QD
     Dates: start: 20240117, end: 20240117
  14. DARATUMUMAB [Suspect]
     Active Substance: DARATUMUMAB
     Dosage: 1800 MILLIGRAM, QD
     Dates: start: 20240207, end: 20240207
  15. DARATUMUMAB [Suspect]
     Active Substance: DARATUMUMAB
     Dosage: 1800 MILLIGRAM, QD
     Dates: start: 20240228, end: 20240228
  16. DARATUMUMAB [Suspect]
     Active Substance: DARATUMUMAB
     Dosage: 1800 MILLIGRAM, QD
     Dates: start: 20240327, end: 20240327
  17. DARATUMUMAB [Suspect]
     Active Substance: DARATUMUMAB
     Dosage: 1800 MILLIGRAM, QD
     Dates: start: 20240424, end: 20240424
  18. DARATUMUMAB [Suspect]
     Active Substance: DARATUMUMAB
     Dosage: 1800 MILLIGRAM, QD
     Dates: start: 20240522, end: 20240522
  19. DARATUMUMAB [Suspect]
     Active Substance: DARATUMUMAB
     Dosage: 1800 MILLIGRAM, QD
     Dates: start: 20240619, end: 20240619
  20. DEXAMETHASONE [Concomitant]
     Active Substance: DEXAMETHASONE
     Indication: Plasma cell myeloma
     Dosage: UNK

REACTIONS (1)
  - Plasma cell myeloma [Recovered/Resolved]

NARRATIVE: CASE EVENT DATE: 20240619
